FAERS Safety Report 18191887 (Version 6)
Quarter: 2022Q1

REPORT INFORMATION
  Report Type: Spontaneous
  Country: PK (occurrence: PK)
  Receive Date: 20200825
  Receipt Date: 20220328
  Transmission Date: 20220423
  Serious: Yes (Other)
  Sender: FDA-Public Use
  Company Number: PK-PFIZER INC-2020002038

PATIENT
  Age: 48 Year
  Sex: Male
  Weight: 78 kg

DRUGS (9)
  1. ENBREL [Suspect]
     Active Substance: ETANERCEPT
     Indication: Psoriatic arthropathy
     Dosage: 50 MG, EVERY 3 WEEKS
     Route: 065
     Dates: start: 2010
  2. ENBREL [Suspect]
     Active Substance: ETANERCEPT
     Indication: Ankylosing spondylitis
     Dosage: 50 MG, MONTHLY
     Route: 058
  3. ENBREL [Suspect]
     Active Substance: ETANERCEPT
     Dosage: 50 MG, AFTER EVERY 3 WEEKS
     Route: 058
  4. ENBREL [Suspect]
     Active Substance: ETANERCEPT
     Dosage: 50 MG, WEEKLY (EVERY WEEK NEXT 2 MONTHS)
     Route: 065
  5. ENBREL [Suspect]
     Active Substance: ETANERCEPT
     Dosage: 50 MG, WEEKLY
     Route: 058
     Dates: start: 202101
  6. ARCOX [Concomitant]
     Dosage: 60 MG, 1X/DAY (AFTER MEAL) FOR ONE MONTH, THEN AS NEEDED.
  7. COSENTYX [Concomitant]
     Active Substance: SECUKINUMAB
     Dosage: 150 MG, UNK
     Route: 058
     Dates: start: 201903
  8. COSENTYX [Concomitant]
     Active Substance: SECUKINUMAB
     Dosage: 150 UNK  *SINGLE
     Route: 058
     Dates: start: 201903
  9. DOLGINA [PARACETAMOL;TRAMADOL HYDROCHLORIDE] [Concomitant]
     Dosage: 1 DF, 1X/DAY (TAKE 1 TABLET ONCE A DAY)

REACTIONS (13)
  - Iridocyclitis [Unknown]
  - Diabetes mellitus [Unknown]
  - Off label use [Unknown]
  - Dry mouth [Unknown]
  - Hypertension [Unknown]
  - Musculoskeletal stiffness [Unknown]
  - Blood triglycerides abnormal [Unknown]
  - Psoriasis [Unknown]
  - Pyrexia [Unknown]
  - Ankylosing spondylitis [Unknown]
  - Neck pain [Unknown]
  - Back pain [Unknown]
  - Arthralgia [Unknown]

NARRATIVE: CASE EVENT DATE: 20100101
